FAERS Safety Report 21558854 (Version 1)
Quarter: 2022Q4

REPORT INFORMATION
  Report Type: Other
  Country: TR (occurrence: None)
  Receive Date: 20221107
  Receipt Date: 20221107
  Transmission Date: 20230113
  Serious: Yes (Other)
  Sender: FDA-Public Use
  Company Number: TR-ROCHE-3211413

PATIENT
  Age: 54 Year
  Sex: Female

DRUGS (13)
  1. CAPECITABINE [Suspect]
     Active Substance: CAPECITABINE
     Indication: Colorectal cancer metastatic
     Dosage: TWICE PER DAY FOR A TWO WEEKS ON-ONE WEEK OFF REGIMEN (MXELIRI DOSAGE).
     Route: 065
  2. BEVACIZUMAB [Suspect]
     Active Substance: BEVACIZUMAB
     Indication: Colorectal cancer metastatic
     Route: 065
     Dates: start: 201704
  3. OXALIPLATIN [Suspect]
     Active Substance: OXALIPLATIN
     Indication: Colorectal cancer metastatic
     Route: 065
     Dates: start: 201704
  4. FLUOROURACIL [Suspect]
     Active Substance: FLUOROURACIL
     Indication: Colorectal cancer metastatic
     Route: 065
     Dates: start: 201704
  5. FLUOROURACIL [Suspect]
     Active Substance: FLUOROURACIL
     Route: 065
  6. LEUCOVORIN [Suspect]
     Active Substance: LEUCOVORIN
     Indication: Colorectal cancer metastatic
     Route: 065
     Dates: start: 201704
  7. LEUCOVORIN [Suspect]
     Active Substance: LEUCOVORIN
     Route: 065
  8. IRINOTECAN [Suspect]
     Active Substance: IRINOTECAN
     Indication: Colorectal cancer metastatic
     Route: 065
  9. IRINOTECAN [Suspect]
     Active Substance: IRINOTECAN
     Route: 065
  10. IRINOTECAN [Suspect]
     Active Substance: IRINOTECAN
     Route: 065
  11. AFLIBERCEPT [Suspect]
     Active Substance: AFLIBERCEPT
     Indication: Colorectal cancer metastatic
     Dosage: THREE WEEKLY CYCLES
     Route: 065
  12. ATROPINE [Concomitant]
     Active Substance: ATROPINE
     Route: 042
  13. REGORAFENIB [Concomitant]
     Active Substance: REGORAFENIB
     Dosage: THREE WEEKS ON, ONE WEEK OFF

REACTIONS (6)
  - Metastases to liver [Unknown]
  - Disease progression [Unknown]
  - Off label use [Unknown]
  - Fatigue [Unknown]
  - Diarrhoea [Unknown]
  - Hypertension [Unknown]
